FAERS Safety Report 24937643 (Version 1)
Quarter: 2025Q1

REPORT INFORMATION
  Report Type: Spontaneous
  Country: DE (occurrence: DE)
  Receive Date: 20250206
  Receipt Date: 20250206
  Transmission Date: 20250409
  Serious: Yes (Hospitalization)
  Sender: FRESENIUS KABI
  Company Number: DE-FreseniusKabi-FK202501796

PATIENT
  Age: 60 Year
  Sex: Female
  Weight: 94 kg

DRUGS (1)
  1. OXALIPLATIN [Suspect]
     Active Substance: OXALIPLATIN
     Indication: Product used for unknown indication
     Route: 042

REACTIONS (6)
  - Dysphagia [Unknown]
  - Dysarthria [Unknown]
  - Paraesthesia oral [Unknown]
  - Dyspnoea [Unknown]
  - Restlessness [Unknown]
  - Blood pressure increased [Unknown]

NARRATIVE: CASE EVENT DATE: 20250121
